FAERS Safety Report 7799162-8 (Version None)
Quarter: 2011Q4

REPORT INFORMATION
  Report Type: 
  Country: None (occurrence: None)
  Receive Date: 20111006
  Receipt Date: 20111004
  Transmission Date: 20120403
  Serious: Yes (Hospitalization, Other)
  Sender: FDA-Public Use
  Company Number: CH-PFIZER INC-2011195716

PATIENT
  Age: 70 Year
  Sex: Male

DRUGS (2)
  1. ATORVASTATIN CALCIUM [Suspect]
     Dosage: 80 MG, UNK
  2. ATORVASTATIN CALCIUM [Suspect]
     Dosage: 40 MG,UNK

REACTIONS (1)
  - VASCULAR GRAFT [None]
